FAERS Safety Report 4642763-6 (Version None)
Quarter: 2005Q2

REPORT INFORMATION
  Report Type: 
  Country: None (occurrence: None)
  Receive Date: 20050420
  Receipt Date: 20050407
  Transmission Date: 20051028
  Serious: Yes (Hospitalization, Other)
  Sender: FDA-Public Use
  Company Number: 2005057305

PATIENT
  Age: 46 Year
  Sex: Female

DRUGS (3)
  1. XANAX [Suspect]
     Indication: ILL-DEFINED DISORDER
     Dosage: 1.5 MG (0.5 MG), ORAL
     Route: 048
     Dates: start: 19980725, end: 19980727
  2. VERALIPRIDE (VERALIPRIDE) [Suspect]
     Indication: ILL-DEFINED DISORDER
     Dosage: (3 IN 1 D), ORAL
     Route: 048
     Dates: start: 19910301, end: 19980801
  3. ZOLPIDEM TARTRATE [Concomitant]

REACTIONS (5)
  - ALANINE AMINOTRANSFERASE INCREASED [None]
  - ASPARTATE AMINOTRANSFERASE INCREASED [None]
  - OVERDOSE [None]
  - PARKINSONISM [None]
  - SOMNOLENCE [None]
